FAERS Safety Report 5406170-0 (Version None)
Quarter: 2007Q3

REPORT INFORMATION
  Report Type: 
  Country: None (occurrence: None)
  Receive Date: 20070802
  Receipt Date: 20070802
  Transmission Date: 20080115
  Serious: Yes (Death)
  Sender: FDA-Public Use
  Company Number: None

PATIENT
  Age: 60 Year
  Sex: Male
  Weight: 160 kg

DRUGS (1)
  1. AVANDIA [Suspect]
     Indication: BLOOD GLUCOSE
     Dosage: 1 TABLET DAILY ONCE A DAY
     Dates: start: 20060808, end: 20070429

REACTIONS (1)
  - PULMONARY HYPERTENSION [None]
